FAERS Safety Report 7917357-7 (Version None)
Quarter: 2011Q4

REPORT INFORMATION
  Report Type: 
  Country: None (occurrence: None)
  Receive Date: 20111114
  Receipt Date: 20111031
  Transmission Date: 20120403
  Serious: Yes (Other)
  Sender: FDA-Public Use
  Company Number: TUK2011A00186

PATIENT
  Age: 71 Year
  Sex: Female

DRUGS (7)
  1. PERINDOPRIL ERBUMINE [Concomitant]
  2. EXANATIDE (EXENATIDE) [Concomitant]
  3. ACETAMINOPHEN AND CODEINE PHOSPHATE [Concomitant]
  4. ESOMEPRAZOLE MAGNESIUM [Concomitant]
  5. METFORMIN HCL [Concomitant]
  6. PIOGLITAZONE [Suspect]
     Indication: PRODUCT USED FOR UNKNOWN INDICATION
     Dosage: ORAL
     Route: 048
     Dates: start: 20081113, end: 20111020
  7. SIMVASTATIN [Concomitant]

REACTIONS (1)
  - BLADDER CANCER [None]
